FAERS Safety Report 4726878-X (Version None)
Quarter: 2005Q3

REPORT INFORMATION
  Report Type: 
  Country: None (occurrence: None)
  Receive Date: 20050726
  Receipt Date: 20050713
  Transmission Date: 20060218
  Serious: Yes (Other)
  Sender: FDA-Public Use
  Company Number: 001#0#2005-00214

PATIENT
  Age: 75 Year

DRUGS (4)
  1. ISOSORBIDE DINITRATE [Suspect]
     Indication: SUICIDE ATTEMPT
     Dosage: 8-84 TABLETS, 20 MG; ORAL
     Route: 048
     Dates: start: 20041125, end: 20041125
  2. DIGOXIN [Suspect]
     Indication: SUICIDE ATTEMPT
     Dosage: 10 TABLETS A 0,2 MG; ORAL
     Route: 048
     Dates: start: 20041125, end: 20041125
  3. METFORMIN HCL [Suspect]
     Indication: SUICIDE ATTEMPT
     Dosage: 3.5 G,
     Dates: start: 20041125, end: 20041125
  4. PAROXETINE HCL [Suspect]
     Indication: SUICIDE ATTEMPT
     Dosage: 40 TABLETS, 20 MG; ORAL
     Route: 048
     Dates: start: 20041125, end: 20041125

REACTIONS (5)
  - HYPOTENSION [None]
  - INTENTIONAL MISUSE [None]
  - MULTIPLE DRUG OVERDOSE [None]
  - SOMNOLENCE [None]
  - SUICIDE ATTEMPT [None]
